FAERS Safety Report 4873901-8 (Version None)
Quarter: 2006Q1

REPORT INFORMATION
  Report Type: 
  Country: None (occurrence: None)
  Receive Date: 20060104
  Receipt Date: 20051221
  Transmission Date: 20060701
  Serious: Yes (Other)
  Sender: FDA-Public Use
  Company Number: 2005172572

PATIENT
  Age: 61 Year
  Sex: Male
  Weight: 83.9154 kg

DRUGS (14)
  1. VIAGRA [Suspect]
     Indication: ERECTILE DYSFUNCTION
     Dosage: 2 YEARS AGO
  2. LEVITRA [Suspect]
     Indication: ILL-DEFINED DISORDER
  3. CIALIS [Suspect]
     Indication: ILL-DEFINED DISORDER
  4. CENTRUM SILVER [Concomitant]
  5. PRILOSEC [Concomitant]
  6. OSTEO BI-FLEX (CHONDROITIN SULFATE, GLUCOSAMINE HYDROCHLORIDE) [Concomitant]
  7. STOOL SOFTENER (DOCUSATE SODIUM) [Concomitant]
  8. TOPROL-XL [Concomitant]
  9. PLAVIX [Concomitant]
  10. LIPITOR [Concomitant]
  11. VITAMINS (VITAMINS) [Concomitant]
  12. BUSPIRONE HCL [Concomitant]
  13. PAROXETINE (PAROXETINE) [Concomitant]
  14. ASPIRIN [Concomitant]

REACTIONS (5)
  - DRUG INEFFECTIVE [None]
  - EXERCISE ELECTROCARDIOGRAM ABNORMAL [None]
  - OBSTRUCTION [None]
  - PENIS DISORDER [None]
  - PERIPHERAL COLDNESS [None]
